FAERS Safety Report 15889338 (Version 1)
Quarter: 2019Q1

REPORT INFORMATION
  Report Type: Spontaneous
  Country: CO (occurrence: CO)
  Receive Date: 20190130
  Receipt Date: 20190130
  Transmission Date: 20190417
  Serious: Yes (Hospitalization)
  Sender: FDA-Public Use
  Company Number: CO-MYLANLABS-2019M1005159

PATIENT
  Age: 32 Year
  Sex: Female

DRUGS (1)
  1. HALOPERIDOL. [Suspect]
     Active Substance: HALOPERIDOL
     Indication: BIPOLAR DISORDER
     Route: 065

REACTIONS (10)
  - Rhabdomyolysis [Recovering/Resolving]
  - Hyperchloraemia [Unknown]
  - Anaemia [Not Recovered/Not Resolved]
  - Lung consolidation [Recovered/Resolved]
  - Neuroleptic malignant syndrome [Recovered/Resolved]
  - Oxygen saturation decreased [Recovered/Resolved]
  - Neutropenia [Not Recovered/Not Resolved]
  - Hypernatraemia [Unknown]
  - Leukopenia [Not Recovered/Not Resolved]
  - Thrombocytopenia [Not Recovered/Not Resolved]
